FAERS Safety Report 17099408 (Version 2)
Quarter: 2019Q4

REPORT INFORMATION
  Report Type: Spontaneous
  Country: US (occurrence: US)
  Receive Date: 20191202
  Receipt Date: 20191211
  Transmission Date: 20200122
  Serious: No
  Sender: FDA-Public Use
  Company Number: US-PFIZER INC-2019516991

PATIENT
  Age: 53 Year
  Sex: Female

DRUGS (1)
  1. XALKORI [Suspect]
     Active Substance: CRIZOTINIB
     Indication: NEUROENDOCRINE TUMOUR
     Dosage: 250 MG, 2X/DAY
     Route: 048
     Dates: start: 20191113

REACTIONS (7)
  - Off label use [Unknown]
  - Diarrhoea [Unknown]
  - Nausea [Unknown]
  - Product use in unapproved indication [Unknown]
  - Dysgeusia [Recovering/Resolving]
  - Decreased appetite [Unknown]
  - Vomiting [Unknown]

NARRATIVE: CASE EVENT DATE: 20191113
